FAERS Safety Report 9342489 (Version 1)
Quarter: 2013Q2

REPORT INFORMATION
  Report Type: Spontaneous
  Country: US (occurrence: None)
  Receive Date: 20130528
  Receipt Date: 20130528
  Transmission Date: 20140414
  Serious: Yes (Hospitalization)
  Sender: FDA-Public Use
  Company Number: AUR-APL-2013-01493

PATIENT
  Age: 84 Year
  Sex: Female
  Weight: 60.77 kg

DRUGS (10)
  1. LISINOPRIL + HYDROCHLOROTHIAZIDE [Suspect]
     Indication: HYPERTENSION
     Route: 048
     Dates: start: 2009, end: 20121212
  2. CELECOXIB; IBUPROFEN; NAPROXEN; PLACEBO [Suspect]
     Indication: OSTEOARTHRITIS
     Dates: start: 20121026, end: 20121123
  3. FUROSEMIDE (FUROSEMIDE) [Suspect]
     Indication: OEDEMA
     Dosage: 80 MG (40 MG, 2 IN 1 D)
     Route: 048
     Dates: start: 20120813, end: 20130307
  4. ALENDRONATE SODIUM [Concomitant]
  5. NEXIUM [Concomitant]
  6. ZOLPIDEM [Concomitant]
  7. CRESTOR [Concomitant]
  8. PREDNISONE [Concomitant]
  9. VITAMIN D [Concomitant]
  10. CELEBREX [Concomitant]

REACTIONS (14)
  - Fall [None]
  - Laceration [None]
  - Presyncope [None]
  - Hypovolaemia [None]
  - Bundle branch block left [None]
  - Blood chloride decreased [None]
  - Hyponatraemia [None]
  - Hypokalaemia [None]
  - Iron deficiency anaemia [None]
  - Gastrointestinal haemorrhage [None]
  - Hiatus hernia [None]
  - Oesophagitis [None]
  - Gastritis [None]
  - Oedema [None]
